FAERS Safety Report 13554764 (Version 1)
Quarter: 2017Q2

REPORT INFORMATION
  Report Type: Spontaneous
  Country: US (occurrence: US)
  Receive Date: 20170516
  Receipt Date: 20170516
  Transmission Date: 20170830
  Serious: Yes (Hospitalization)
  Sender: FDA-Public Use
  Company Number: None

PATIENT
  Age: 47 Year
  Sex: Female

DRUGS (2)
  1. CAPECITABINE 150 MG TEVA [Suspect]
     Active Substance: CAPECITABINE
     Route: 048
     Dates: start: 20170223
  2. CAPECITABINE 500 MG [Suspect]
     Active Substance: CAPECITABINE
     Indication: BREAST CANCER
     Route: 048
     Dates: start: 20170223

REACTIONS (3)
  - Dehydration [None]
  - Asthenia [None]
  - Hyperbilirubinaemia [None]
